FAERS Safety Report 10852261 (Version 1)
Quarter: 2015Q1

REPORT INFORMATION
  Report Type: Spontaneous
  Country: US (occurrence: US)
  Receive Date: 20150222
  Receipt Date: 20150222
  Transmission Date: 20150721
  Serious: No
  Sender: FDA-Public Use
  Company Number: US-ALLERGAN-1424928US

PATIENT
  Sex: Male

DRUGS (1)
  1. BOTOX [Suspect]
     Active Substance: ONABOTULINUMTOXINA
     Indication: RECTAL SPASM
     Dosage: 100 UNITS, SINGLE
     Dates: start: 201410, end: 201410

REACTIONS (3)
  - Calculus bladder [Recovered/Resolved]
  - Surgery [Unknown]
  - Off label use [Unknown]
